FAERS Safety Report 8014369-2 (Version None)
Quarter: 2011Q4

REPORT INFORMATION
  Report Type: 
  Country: None (occurrence: None)
  Receive Date: 20111229
  Receipt Date: 20111220
  Transmission Date: 20120403
  Serious: Yes (Hospitalization, Other)
  Sender: FDA-Public Use
  Company Number: PHHY2011VN110869

PATIENT
  Sex: Male

DRUGS (1)
  1. GLEEVEC [Suspect]
     Indication: CHRONIC MYELOID LEUKAEMIA
     Dosage: 600 MG, PER DAY
     Route: 048
     Dates: start: 20110801, end: 20111201

REACTIONS (10)
  - ANAEMIA [None]
  - THROMBOCYTOPENIA [None]
  - ACUTE MYELOID LEUKAEMIA [None]
  - NO THERAPEUTIC RESPONSE [None]
  - WEIGHT DECREASED [None]
  - CHRONIC MYELOID LEUKAEMIA [None]
  - SPLENOMEGALY [None]
  - LEUKOCYTOSIS [None]
  - NEOPLASM MALIGNANT [None]
  - PYREXIA [None]
